FAERS Safety Report 13848493 (Version 1)
Quarter: 2017Q3

REPORT INFORMATION
  Report Type: Report from Study
  Country: AU (occurrence: AU)
  Receive Date: 20170809
  Receipt Date: 20170809
  Transmission Date: 20171127
  Serious: Yes (Death)
  Sender: FDA-Public Use
  Company Number: AU-ROCHE-1975216

PATIENT
  Age: 66 Year
  Sex: Male

DRUGS (1)
  1. RITUXIMAB. [Suspect]
     Active Substance: RITUXIMAB
     Indication: ACQUIRED VON WILLEBRAND^S DISEASE
     Dosage: 4 DOSES
     Route: 042

REACTIONS (4)
  - Intentional product use issue [Unknown]
  - Acute myeloid leukaemia [Fatal]
  - Off label use [Fatal]
  - Hypogammaglobulinaemia [Unknown]
